FAERS Safety Report 24915892 (Version 2)
Quarter: 2025Q1

REPORT INFORMATION
  Report Type: Spontaneous
  Country: AU (occurrence: AU)
  Receive Date: 20250203
  Receipt Date: 20250213
  Transmission Date: 20250408
  Serious: Yes (Hospitalization)
  Sender: TEVA
  Company Number: AU-TEVA-VS-3293140

PATIENT
  Age: 47 Year
  Sex: Female

DRUGS (3)
  1. ZOLEDRONIC ACID [Suspect]
     Active Substance: ZOLEDRONIC ACID
     Indication: Fluorosis
     Route: 065
  2. METHOXYFLURANE [Suspect]
     Active Substance: METHOXYFLURANE
     Indication: Migraine
     Route: 065
  3. METHOXYFLURANE [Suspect]
     Active Substance: METHOXYFLURANE
     Indication: Migraine
     Dosage: DOSE INCREASED
     Route: 065

REACTIONS (5)
  - Fluorosis [Not Recovered/Not Resolved]
  - Drug ineffective [Unknown]
  - Bone disorder [Not Recovered/Not Resolved]
  - Intentional product misuse [Unknown]
  - Renal impairment [Unknown]
